FAERS Safety Report 4397906-9 (Version None)
Quarter: 2004Q3

REPORT INFORMATION
  Report Type: 
  Country: None (occurrence: None)
  Receive Date: 20040714
  Receipt Date: 20040615
  Transmission Date: 20050211
  Serious: Yes (Disabling)
  Sender: FDA-Public Use
  Company Number: JP-MERCK-0406USA01719

PATIENT
  Age: 83 Year
  Sex: Female

DRUGS (13)
  1. LACTOBACILLUS CASEI (AS DRUG) [Concomitant]
     Indication: COLITIS
     Route: 048
     Dates: start: 20040422
  2. SYMMETREL [Concomitant]
     Indication: PARKINSON'S DISEASE
     Route: 048
     Dates: start: 20040414, end: 20040414
  3. PRIMAXIN [Suspect]
     Indication: PLEURISY
     Route: 042
     Dates: start: 20040525, end: 20040525
  4. PRIMAXIN [Suspect]
     Route: 042
     Dates: start: 20040526, end: 20040526
  5. PRIMAXIN [Suspect]
     Indication: PNEUMONIA
     Route: 042
     Dates: start: 20040525, end: 20040525
  6. PRIMAXIN [Suspect]
     Route: 042
     Dates: start: 20040526, end: 20040526
  7. DIGOXIN [Concomitant]
     Route: 048
     Dates: start: 20040424
  8. ELECTROLYTES (UNSPECIFIED) [Concomitant]
     Indication: FLUID REPLACEMENT
     Route: 065
     Dates: start: 20040525, end: 20040607
  9. NIFEDIPINE [Concomitant]
     Indication: BLOOD PRESSURE DECREASED
     Route: 048
     Dates: start: 20040414
  10. PHENOBARBITAL [Concomitant]
     Route: 048
     Dates: start: 20040423, end: 20040529
  11. TELMISARTAN [Concomitant]
     Route: 048
     Dates: start: 20040419
  12. TEPRENONE [Concomitant]
     Indication: GASTRITIS
     Route: 048
     Dates: start: 20040414
  13. TRIMEBUTINE MALEATE [Concomitant]
     Indication: GASTRITIS
     Route: 065
     Dates: start: 20040428

REACTIONS (1)
  - DEPRESSED LEVEL OF CONSCIOUSNESS [None]
